FAERS Safety Report 5892300-3 (Version None)
Quarter: 2008Q3

REPORT INFORMATION
  Report Type: 
  Country: None (occurrence: None)
  Receive Date: 20080919
  Receipt Date: 20080903
  Transmission Date: 20090109
  Serious: No
  Sender: FDA-Public Use
  Company Number: 8036808

PATIENT
  Sex: Male

DRUGS (3)
  1. KEPPRA [Suspect]
     Indication: CONVULSION
     Dosage: PO
     Route: 048
  2. KEPPRA [Suspect]
     Indication: CONVULSION
     Dosage: 750 MG 2/D
  3. KEPPRA [Suspect]
     Indication: CONVULSION
     Dosage: 750 MG 2/D

REACTIONS (1)
  - WRONG TECHNIQUE IN DRUG USAGE PROCESS [None]
